FAERS Safety Report 7337819-3 (Version None)
Quarter: 2011Q1

REPORT INFORMATION
  Report Type: 
  Country: None (occurrence: None)
  Receive Date: 20110224
  Receipt Date: 20110216
  Transmission Date: 20110831
  Serious: Yes (Hospitalization)
  Sender: FDA-Public Use
  Company Number: 2011000871

PATIENT
  Age: 70 Year
  Sex: Female

DRUGS (1)
  1. TARCEVA [Suspect]
     Indication: LUNG ADENOCARCINOMA
     Dosage: (150 MG,QD), ORAL
     Route: 048

REACTIONS (1)
  - CYSTITIS HAEMORRHAGIC [None]
